FAERS Safety Report 12728924 (Version 1)
Quarter: 2016Q3

REPORT INFORMATION
  Report Type: Spontaneous
  Country: US (occurrence: US)
  Receive Date: 20160908
  Receipt Date: 20160908
  Transmission Date: 20161109
  Serious: Yes (Other)
  Sender: FDA-Public Use
  Company Number: None

PATIENT
  Sex: Female

DRUGS (1)
  1. BYDUREON [Suspect]
     Active Substance: EXENATIDE
     Indication: DIABETES MELLITUS

REACTIONS (1)
  - Alopecia [None]
